FAERS Safety Report 18670367 (Version 2)
Quarter: 2022Q1

REPORT INFORMATION
  Report Type: Report from Study
  Country: US (occurrence: US)
  Receive Date: 20201228
  Receipt Date: 20220322
  Transmission Date: 20220423
  Serious: Yes (Disabling, Other)
  Sender: FDA-Public Use
  Company Number: US-TAKEDA-2020TUS060463

PATIENT
  Sex: Male

DRUGS (1)
  1. VEDOLIZUMAB [Suspect]
     Active Substance: VEDOLIZUMAB
     Indication: Crohn^s disease
     Dosage: UNK
     Route: 042

REACTIONS (6)
  - Disability [Unknown]
  - Gastrointestinal surgery [Unknown]
  - Inflammation [Unknown]
  - Drug ineffective [Unknown]
  - Stress [Unknown]
  - Constipation [Unknown]
